FAERS Safety Report 7633328-2 (Version None)
Quarter: 2011Q3

REPORT INFORMATION
  Report Type: 
  Country: None (occurrence: None)
  Receive Date: 20110725
  Receipt Date: 20100708
  Transmission Date: 20111222
  Serious: No
  Sender: FDA-Public Use
  Company Number: US-BRISTOL-MYERS SQUIBB COMPANY-15185481

PATIENT

DRUGS (1)
  1. SPRYCEL [Suspect]

REACTIONS (2)
  - URTICARIA [None]
  - RASH [None]
